FAERS Safety Report 24077960 (Version 1)
Quarter: 2024Q3

REPORT INFORMATION
  Report Type: Spontaneous
  Country: NL (occurrence: NL)
  Receive Date: 20240711
  Receipt Date: 20240711
  Transmission Date: 20241016
  Serious: Yes (Other)
  Sender: AMGEN
  Company Number: NL-SERVIER-S24007807

PATIENT
  Age: 59 Year
  Sex: Male

DRUGS (1)
  1. IVABRADINE [Suspect]
     Active Substance: IVABRADINE
     Indication: Vasospasm
     Dosage: UNK
     Route: 065

REACTIONS (1)
  - Drug intolerance [Recovered/Resolved]
